FAERS Safety Report 10209740 (Version 1)
Quarter: 2014Q2

REPORT INFORMATION
  Report Type: Spontaneous
  Country: BR (occurrence: BR)
  Receive Date: 20140602
  Receipt Date: 20140602
  Transmission Date: 20141212
  Serious: Yes (Other)
  Sender: FDA-Public Use
  Company Number: BR-ROCHE-1410864

PATIENT
  Age: 63 Year
  Sex: Female
  Weight: 91 kg

DRUGS (8)
  1. HERCEPTIN [Suspect]
     Indication: BREAST CANCER
     Route: 042
     Dates: start: 20131007, end: 20131007
  2. CLONAZEPAM [Concomitant]
     Indication: ANXIETY
     Route: 048
  3. ENALAPRIL [Concomitant]
     Indication: HYPERTENSION
     Route: 048
  4. DOCETAXEL [Concomitant]
     Dosage: FIRST CYCLE
     Route: 065
     Dates: start: 20130713
  5. DOCETAXEL [Concomitant]
     Dosage: SECOND CYCLE
     Route: 065
     Dates: start: 20130803
  6. DOCETAXEL [Concomitant]
     Dosage: THIRD CYCLE
     Route: 065
     Dates: start: 20130824
  7. DOCETAXEL [Concomitant]
     Dosage: FOURTH CYCLE
     Route: 065
     Dates: start: 20130914
  8. CYCLOPHOSPHAMIDE [Concomitant]

REACTIONS (2)
  - Back pain [Recovered/Resolved]
  - Tremor [Recovered/Resolved]
